FAERS Safety Report 8216932-2 (Version None)
Quarter: 2012Q1

REPORT INFORMATION
  Report Type: 
  Country: None (occurrence: None)
  Receive Date: 20120318
  Receipt Date: 20120308
  Transmission Date: 20120608
  Serious: Yes (Hospitalization, Other)
  Sender: FDA-Public Use
  Company Number: CA-ROCHE-GNE316134

PATIENT
  Sex: Male

DRUGS (4)
  1. XOLAIR [Suspect]
     Indication: ASTHMA
     Dosage: 300 MG, 1/MONTH
     Route: 058
     Dates: start: 20061109
  2. XOLAIR [Suspect]
     Dosage: UNK
     Dates: start: 20110224
  3. PREDNISONE [Concomitant]
     Indication: PRODUCT USED FOR UNKNOWN INDICATION
  4. XOLAIR [Suspect]
     Route: 058
     Dates: start: 20120214

REACTIONS (10)
  - LOWER RESPIRATORY TRACT INFECTION VIRAL [None]
  - HYPERSENSITIVITY [None]
  - LIMB DISCOMFORT [None]
  - SINUS DISORDER [None]
  - NASOPHARYNGITIS [None]
  - DYSPNOEA [None]
  - OROPHARYNGEAL PAIN [None]
  - INJECTION SITE REACTION [None]
  - SINUS HEADACHE [None]
  - ROAD TRAFFIC ACCIDENT [None]
